FAERS Safety Report 4102613 (Version 2)
Quarter: 2017Q4

REPORT INFORMATION
  Report Type: Spontaneous
  Country: JP (occurrence: JP)
  Receive Date: 20040308
  Receipt Date: 20171006
  Transmission Date: 20180321
  Serious: Yes (Other)
  Sender: FDA-Public Use
  Company Number: JP-BRISTOL-MYERS SQUIBB COMPANY-12517322

PATIENT
  Age: 16 Year
  Sex: Male

DRUGS (4)
  1. BRIPLATIN [Suspect]
     Active Substance: CISPLATIN
     Indication: PINEAL GERMINOMA
     Dosage: UNK
     Route: 065
     Dates: start: 2000
  2. PARAPLATIN [Suspect]
     Active Substance: CARBOPLATIN
     Indication: PINEAL GERMINOMA
     Dosage: UNK
     Route: 042
     Dates: start: 1998
  3. VEPESID [Suspect]
     Active Substance: ETOPOSIDE
     Indication: PINEAL GERMINOMA
     Dosage: 3 CYCLES IN 1998
     Route: 065
     Dates: start: 2000
  4. IFOSFAMIDE. [Suspect]
     Active Substance: IFOSFAMIDE
     Indication: PINEAL GERMINOMA
     Dosage: UNK
     Route: 065
     Dates: start: 2000

REACTIONS (1)
  - Chronic myeloid leukaemia [Recovering/Resolving]

NARRATIVE: CASE EVENT DATE: 2002
